FAERS Safety Report 9345360 (Version 1)
Quarter: 2013Q2

REPORT INFORMATION
  Report Type: Spontaneous
  Country: BR (occurrence: BR)
  Receive Date: 20130613
  Receipt Date: 20130613
  Transmission Date: 20140414
  Serious: Yes (Death)
  Sender: FDA-Public Use
  Company Number: BR-PFIZER INC-2013017645

PATIENT
  Sex: Male

DRUGS (1)
  1. SUTENT [Suspect]
     Indication: GASTROINTESTINAL CARCINOMA

REACTIONS (4)
  - Death [Fatal]
  - Mucosal inflammation [Unknown]
  - Palmar-plantar erythrodysaesthesia syndrome [Unknown]
  - Laceration [Unknown]
